FAERS Safety Report 7901515-1 (Version None)
Quarter: 2011Q4

REPORT INFORMATION
  Report Type: 
  Country: None (occurrence: None)
  Receive Date: 20111108
  Receipt Date: 20111024
  Transmission Date: 20120403
  Serious: Yes (Other)
  Sender: FDA-Public Use
  Company Number: US-ROCHE-1007340

PATIENT

DRUGS (6)
  1. DOXORUBICIN HCL [Suspect]
     Indication: MANTLE CELL LYMPHOMA
     Dosage: DAYS 1-2 (TOTAL DOSE OVER 48 H EQUAL TO 50 MG/M2),
     Route: 042
  2. VINCRISTINE [Suspect]
     Indication: MANTLE CELL LYMPHOMA
     Dosage: DAY 3
     Route: 042
  3. CYCLOPHOSPHAMIDE [Suspect]
     Indication: MANTLE CELL LYMPHOMA
     Dosage: DAYS 1-3
     Route: 042
  4. DEXAMETHASONE [Suspect]
     Indication: MANTLE CELL LYMPHOMA
     Dosage: DAYS 1-4, 21 DAY CYCLE
     Route: 048
  5. BORTEZOMIB [Suspect]
     Indication: MANTLE CELL LYMPHOMA
     Dosage: DAYS 1 AND 4,
     Route: 042
  6. MABTHERA [Suspect]
     Indication: MANTLE CELL LYMPHOMA
     Dosage: DAY 1
     Route: 042

REACTIONS (19)
  - INFECTION [None]
  - HYPERGLYCAEMIA [None]
  - DEHYDRATION [None]
  - MOOD ALTERED [None]
  - PAIN [None]
  - FATIGUE [None]
  - HYPOGAMMAGLOBULINAEMIA [None]
  - HYPONATRAEMIA [None]
  - PERIPHERAL SENSORY NEUROPATHY [None]
  - PULMONARY EMBOLISM [None]
  - THROMBOCYTOPENIA [None]
  - CLOSTRIDIUM DIFFICILE COLITIS [None]
  - NEUTROPENIA [None]
  - NEUTROPENIC INFECTION [None]
  - HYPOPHOSPHATAEMIA [None]
  - PNEUMOCOCCAL SEPSIS [None]
  - HAEMOGLOBIN [None]
  - OESOPHAGITIS [None]
  - FEBRILE NEUTROPENIA [None]
